FAERS Safety Report 9678723 (Version 1)
Quarter: 2013Q4

REPORT INFORMATION
  Report Type: Spontaneous
  Country: US (occurrence: US)
  Receive Date: 20131108
  Receipt Date: 20131108
  Transmission Date: 20140711
  Serious: No
  Sender: FDA-Public Use
  Company Number: US-PFIZER INC-2013318807

PATIENT
  Age: 30 Year
  Sex: Male

DRUGS (1)
  1. EFFEXOR XR [Suspect]
     Dosage: UNK

REACTIONS (6)
  - Anxiety [Unknown]
  - Insomnia [Unknown]
  - Abdominal discomfort [Unknown]
  - Tension [Unknown]
  - Restlessness [Unknown]
  - Dyspnoea [Unknown]
